FAERS Safety Report 13821048 (Version 2)
Quarter: 2017Q3

REPORT INFORMATION
  Report Type: Spontaneous
  Country: US (occurrence: US)
  Receive Date: 20170801
  Receipt Date: 20170810
  Transmission Date: 20171127
  Serious: Yes (Life-Threatening, Hospitalization, Other)
  Sender: FDA-Public Use
  Company Number: US-AKORN PHARMACEUTICALS-2017AKN00935

PATIENT
  Age: 17 Year
  Sex: Female
  Weight: 52 kg

DRUGS (5)
  1. IBUPROFEN. [Suspect]
     Active Substance: IBUPROFEN
  2. MYORISAN [Suspect]
     Active Substance: ISOTRETINOIN
     Dosage: 30 MG, 2X/DAY
     Dates: start: 201706, end: 20170713
  3. MYORISAN [Suspect]
     Active Substance: ISOTRETINOIN
     Indication: ACNE
     Dosage: 40 MG, 1X/DAY
     Dates: start: 20170428, end: 201706
  4. ASPIRIN. [Suspect]
     Active Substance: ASPIRIN
  5. MYORISAN [Suspect]
     Active Substance: ISOTRETINOIN
     Indication: ACNE
     Dosage: 30 MG, 1X/DAY
     Dates: start: 20170221, end: 201704

REACTIONS (4)
  - Bipolar disorder [Unknown]
  - Depressive symptom [Unknown]
  - Suicide attempt [Recovered/Resolved]
  - Intentional overdose [Recovered/Resolved]

NARRATIVE: CASE EVENT DATE: 20170713
